FAERS Safety Report 11385604 (Version 1)
Quarter: 2015Q3

REPORT INFORMATION
  Report Type: Spontaneous
  Country: FR (occurrence: FR)
  Receive Date: 20150817
  Receipt Date: 20150817
  Transmission Date: 20151125
  Serious: Yes (Death)
  Sender: FDA-Public Use
  Company Number: FR-CIPLA LTD.-2015FR06592

PATIENT

DRUGS (2)
  1. EPIRUBICIN [Suspect]
     Active Substance: EPIRUBICIN
     Indication: INFLAMMATORY CARCINOMA OF THE BREAST
     Dosage: 150 MG/M2, ADMINISTERED EVERY 21 DAYS
     Route: 065
  2. CYCLOPHOSPHAMIDE. [Suspect]
     Active Substance: CYCLOPHOSPHAMIDE
     Indication: INFLAMMATORY CARCINOMA OF THE BREAST
     Dosage: 4 G/M2, ADMINISTERED EVERY 21 DAYS
     Route: 065

REACTIONS (1)
  - Completed suicide [Fatal]
